FAERS Safety Report 19595061 (Version 1)
Quarter: 2021Q3

REPORT INFORMATION
  Report Type: Spontaneous
  Country: CN (occurrence: CN)
  Receive Date: 20210722
  Receipt Date: 20210722
  Transmission Date: 20211014
  Serious: Yes (Other)
  Sender: FDA-Public Use
  Company Number: CN-FRESENIUS KABI-FK202107442

PATIENT
  Age: 24 Year
  Sex: Female
  Weight: 47 kg

DRUGS (1)
  1. VOLUVEN [Suspect]
     Active Substance: HYDROXYETHYL STARCH 130/0.4
     Indication: BLOOD VOLUME EXPANSION
     Dosage: FROM OF ADMIN.: REPORTED AS {INJECTION}
     Route: 041
     Dates: start: 20210709, end: 20210709

REACTIONS (1)
  - Anaphylactic shock [Recovering/Resolving]

NARRATIVE: CASE EVENT DATE: 20210709
